FAERS Safety Report 4553871-2 (Version None)
Quarter: 2005Q1

REPORT INFORMATION
  Report Type: 
  Country: None (occurrence: None)
  Receive Date: 20050113
  Receipt Date: 20050113
  Transmission Date: 20050727
  Serious: Yes (Life-Threatening, Disabling)
  Sender: FDA-Public Use
  Company Number: None

PATIENT
  Age: 79 Year
  Sex: Female
  Weight: 46.2669 kg

DRUGS (3)
  1. NAMENDA [Suspect]
     Indication: DEMENTIA ALZHEIMER'S TYPE
     Dosage: 10 MG PO BID
     Route: 048
  2. ARICEPT [Concomitant]
  3. VITAMIN E [Concomitant]

REACTIONS (3)
  - ABASIA [None]
  - APHASIA [None]
  - CEREBELLAR INFARCTION [None]
